FAERS Safety Report 6521654-X (Version None)
Quarter: 2009Q4

REPORT INFORMATION
  Report Type: 
  Country: None (occurrence: None)
  Receive Date: 20091224
  Receipt Date: 20091210
  Transmission Date: 20100525
  Serious: Yes (Other)
  Sender: FDA-Public Use
  Company Number: DSA_42173_2009

PATIENT
  Sex: Female

DRUGS (2)
  1. WELLBUTRIN XL [Suspect]
     Indication: DRUG USE FOR UNKNOWN INDICATION
     Dosage: (150 MG,  150 MG 2 TABLETS ONCE A DAY ORAL)
     Route: 048
     Dates: start: 20091117
  2. ZOLOFT [Concomitant]

REACTIONS (1)
  - VOCAL CORD PARALYSIS [None]
